FAERS Safety Report 9435414 (Version 1)
Quarter: 2013Q3

REPORT INFORMATION
  Report Type: Spontaneous
  Country: JP (occurrence: JP)
  Receive Date: 20130801
  Receipt Date: 20130801
  Transmission Date: 20140515
  Serious: Yes (Other)
  Sender: FDA-Public Use
  Company Number: JP-GLAXOSMITHKLINE-B0900580A

PATIENT
  Sex: Male

DRUGS (11)
  1. AVOLVE [Suspect]
     Indication: BENIGN PROSTATIC HYPERPLASIA
     Dosage: .5MG PER DAY
     Route: 048
     Dates: start: 20130124
  2. DIOVAN [Concomitant]
     Route: 048
  3. AMLODIPINE [Concomitant]
     Route: 048
  4. MINZAIN [Concomitant]
     Route: 048
  5. GLIMEPIRIDE [Concomitant]
     Route: 048
  6. JANUVIA [Concomitant]
     Route: 048
  7. SYMBICORT [Concomitant]
     Route: 055
  8. PREDNISOLONE [Concomitant]
     Route: 048
  9. DAIPHEN [Concomitant]
     Route: 048
  10. RABEPRAZOLE [Concomitant]
     Route: 048
  11. ACTONEL [Concomitant]
     Route: 048

REACTIONS (2)
  - Testicular hypertrophy [Not Recovered/Not Resolved]
  - Testis discomfort [Not Recovered/Not Resolved]
